FAERS Safety Report 6528994-9 (Version None)
Quarter: 2009Q4

REPORT INFORMATION
  Report Type: 
  Country: None (occurrence: None)
  Receive Date: 20091224
  Receipt Date: 20091216
  Transmission Date: 20100525
  Serious: Yes (Death)
  Sender: FDA-Public Use
  Company Number: 2009EU004816

PATIENT
  Age: 66 Year
  Sex: Female

DRUGS (2)
  1. TACROLIMUS [Suspect]
     Indication: RENAL TRANSPLANT
     Dates: start: 20060601
  2. MYCOPHENOLATE MOFETIL [Suspect]
     Indication: RENAL TRANSPLANT
     Dates: start: 20060601

REACTIONS (11)
  - DOUGLAS' ABSCESS [None]
  - HYPOVOLAEMIC SHOCK [None]
  - INFLAMMATION [None]
  - LYMPHOCELE [None]
  - METASTASES TO BLADDER [None]
  - METASTASES TO GASTROINTESTINAL TRACT [None]
  - METASTASES TO PERITONEUM [None]
  - OBSTRUCTIVE UROPATHY [None]
  - PERITONITIS [None]
  - RENAL CELL CARCINOMA [None]
  - RENAL FAILURE ACUTE [None]
